FAERS Safety Report 18691917 (Version 2)
Quarter: 2021Q1

REPORT INFORMATION
  Report Type: Spontaneous
  Country: US (occurrence: US)
  Receive Date: 20210102
  Receipt Date: 20210125
  Transmission Date: 20210419
  Serious: Yes (Life-Threatening, Hospitalization, Other)
  Sender: FDA-Public Use
  Company Number: US-ACCORD-212854

PATIENT
  Age: 60 Year
  Sex: Female

DRUGS (1)
  1. HYDROXYCHLOROQUINE [Suspect]
     Active Substance: HYDROXYCHLOROQUINE
     Indication: SCLERODERMA

REACTIONS (6)
  - Cardiogenic shock [Unknown]
  - Cardiomyopathy [Unknown]
  - Atrioventricular block complete [Unknown]
  - Off label use [Unknown]
  - Cardiac amyloidosis [Unknown]
  - Syncope [Unknown]
